FAERS Safety Report 11112514 (Version 1)
Quarter: 2015Q2

REPORT INFORMATION
  Report Type: Spontaneous
  Country: US (occurrence: US)
  Receive Date: 20150514
  Receipt Date: 20150514
  Transmission Date: 20150821
  Serious: Yes (Other)
  Sender: FDA-Public Use
  Company Number: US-BAYER-2015-223574

PATIENT
  Sex: Female

DRUGS (1)
  1. MIRALAX [Suspect]
     Active Substance: POLYETHYLENE GLYCOL 3350
     Indication: DIVERTICULITIS
     Dosage: 0.5 DF, QD
     Route: 048
     Dates: start: 20150415, end: 20150505

REACTIONS (3)
  - Drug dependence [Unknown]
  - Product use issue [None]
  - Rash [Unknown]

NARRATIVE: CASE EVENT DATE: 20150415
